FAERS Safety Report 7296144-X (Version None)
Quarter: 2011Q1

REPORT INFORMATION
  Report Type: 
  Country: None (occurrence: None)
  Receive Date: 20110211
  Receipt Date: 20110211
  Transmission Date: 20110831
  Serious: Yes (Hospitalization)
  Sender: FDA-Public Use
  Company Number: None

PATIENT
  Sex: Female

DRUGS (24)
  1. SIMVASTATIN [Concomitant]
  2. METFORMIN [Concomitant]
  3. ASPIRIN [Concomitant]
  4. IPRATROPIUM BROMIDE [Concomitant]
  5. ALBUTEROL [Concomitant]
  6. CALCIUM W/VITAMIN D [Concomitant]
  7. GLIPIZIDE [Concomitant]
  8. FEXOFENADINE [Concomitant]
  9. TRITERENE/HYDROCHLOROTHIOBIDE [Concomitant]
  10. VICTOZA [Suspect]
     Indication: TYPE 2 DIABETES MELLITUS
     Dosage: 1.8 MG DAILY SUBQ
     Route: 058
     Dates: start: 20101203, end: 20101231
  11. CALCITRIOL [Concomitant]
  12. CLINDAMYCIN [Concomitant]
  13. SPIRONOLACTONE [Concomitant]
  14. MULTI-VITAMIN [Concomitant]
  15. PROMETHAZINE HCL [Concomitant]
  16. FISH OIL [Concomitant]
  17. DICYCLOMINE [Concomitant]
  18. AZATHIOPRINE SODIUM [Concomitant]
  19. QUINAPRIL [Concomitant]
  20. PIOGLITIAZONE [Concomitant]
  21. CIPROFLOXACIN [Concomitant]
  22. FLUTICASONEL SALMETEROL [Concomitant]
  23. GEMFIBROZIL [Concomitant]
  24. ASPIRIN [Concomitant]

REACTIONS (7)
  - BLOOD POTASSIUM INCREASED [None]
  - NAUSEA [None]
  - BLOOD SODIUM DECREASED [None]
  - VOMITING [None]
  - BLOOD UREA INCREASED [None]
  - BLOOD CREATININE INCREASED [None]
  - DIARRHOEA [None]
